FAERS Safety Report 24356956 (Version 4)
Quarter: 2024Q4

REPORT INFORMATION
  Report Type: Spontaneous
  Country: US (occurrence: US)
  Receive Date: 20240924
  Receipt Date: 20241107
  Transmission Date: 20250115
  Serious: No
  Sender: ROCHE
  Company Number: US-ROCHE-10000088014

PATIENT
  Age: 43 Year
  Sex: Female

DRUGS (1)
  1. ACTEMRA [Suspect]
     Active Substance: TOCILIZUMAB
     Indication: Rheumatoid arthritis
     Route: 058

REACTIONS (4)
  - Device leakage [Unknown]
  - Liquid product physical issue [Unknown]
  - Product dose omission issue [Unknown]
  - No adverse event [Unknown]
